FAERS Safety Report 6599850-5 (Version None)
Quarter: 2010Q1

REPORT INFORMATION
  Report Type: 
  Country: None (occurrence: None)
  Receive Date: 20100216
  Receipt Date: 20100204
  Transmission Date: 20100710
  Serious: Yes (Hospitalization)
  Sender: FDA-Public Use
  Company Number: FKO201000029

PATIENT
  Age: 57 Year
  Sex: Female

DRUGS (4)
  1. FLUOROURACIL [Suspect]
     Indication: DRUG USE FOR UNKNOWN INDICATION
     Dates: start: 20090901
  2. OXALIPLATIN [Suspect]
     Indication: DRUG USE FOR UNKNOWN INDICATION
     Dates: start: 20090901
  3. FOLINIC ACID [Concomitant]
  4. ERBITUX [Concomitant]

REACTIONS (3)
  - BLOOD CREATINE INCREASED [None]
  - DIARRHOEA [None]
  - NAUSEA [None]
